FAERS Safety Report 15308345 (Version 1)
Quarter: 2018Q3

REPORT INFORMATION
  Report Type: Spontaneous
  Country: SK (occurrence: SK)
  Receive Date: 20180822
  Receipt Date: 20180822
  Transmission Date: 20181010
  Serious: Yes (Other)
  Sender: FDA-Public Use
  Company Number: SK-TEVA-2018-SK-945336

PATIENT
  Age: 84 Year

DRUGS (1)
  1. TERBINAFIN ACTAVIS 250 MG [Suspect]
     Active Substance: TERBINAFINE
     Indication: ONYCHOMYCOSIS
     Route: 048

REACTIONS (1)
  - Cystic lymphangioma [Unknown]

NARRATIVE: CASE EVENT DATE: 20180424
